FAERS Safety Report 23770952 (Version 5)
Quarter: 2024Q4

REPORT INFORMATION
  Report Type: Report from Study
  Country: US (occurrence: US)
  Receive Date: 20240423
  Receipt Date: 20241121
  Transmission Date: 20250115
  Serious: Yes (Hospitalization, Other)
  Sender: ABBVIE
  Company Number: US-ABBVIE-5725973

PATIENT
  Age: 39 Year
  Sex: Female

DRUGS (3)
  1. HUMIRA [Suspect]
     Active Substance: ADALIMUMAB
     Indication: Crohn^s disease
     Dosage: FORM STRENGTH: 40 MILLIGRAM/CITRATE FREE
     Route: 058
     Dates: start: 199902, end: 199902
  2. HUMIRA [Suspect]
     Active Substance: ADALIMUMAB
     Dosage: FORM STRENGTH: 40 MILLIGRAM/CITRATE FREE
     Route: 058
     Dates: start: 199902
  3. HUMIRA [Suspect]
     Active Substance: ADALIMUMAB
     Dosage: FORM STRENGTH: 40 MILLIGRAM/CITRATE FREE?END DATE IN 1999
     Route: 058
     Dates: start: 199901

REACTIONS (23)
  - Hypotension [Unknown]
  - Mineral supplementation [Recovered/Resolved]
  - Thrombosis [Unknown]
  - Dehydration [Recovered/Resolved]
  - Cholecystectomy [Recovered/Resolved]
  - Blood magnesium decreased [Unknown]
  - Joint warmth [Unknown]
  - Arthralgia [Unknown]
  - Erythema [Unknown]
  - Blood creatinine increased [Unknown]
  - Dehydration [Unknown]
  - Insomnia [Unknown]
  - Pain [Recovered/Resolved]
  - Unevaluable event [Recovered/Resolved]
  - Acute kidney injury [Unknown]
  - Loss of consciousness [Unknown]
  - Dehydration [Recovered/Resolved]
  - Fatigue [Not Recovered/Not Resolved]
  - Muscle spasms [Not Recovered/Not Resolved]
  - Anaemia [Unknown]
  - Cataract [Recovering/Resolving]
  - Infusion related reaction [Unknown]
  - Muscle spasms [Unknown]

NARRATIVE: CASE EVENT DATE: 20100101
